FAERS Safety Report 10584410 (Version 2)
Quarter: 2014Q4

REPORT INFORMATION
  Report Type: Spontaneous
  Country: JP (occurrence: JP)
  Receive Date: 20141114
  Receipt Date: 20141114
  Transmission Date: 20150529
  Serious: Yes (Other)
  Sender: FDA-Public Use
  Company Number: JP-009507513-1410JPN016318

PATIENT
  Age: 87 Year
  Sex: Female
  Weight: 49 kg

DRUGS (4)
  1. ACINON [Concomitant]
     Active Substance: NIZATIDINE
     Dosage: 150 MG, QD
     Route: 048
     Dates: start: 20100413
  2. FOSAMAX [Suspect]
     Active Substance: ALENDRONATE SODIUM
     Indication: OSTEOPOROSIS
     Dosage: 35 MG, QW
     Route: 048
     Dates: start: 20140213, end: 20141009
  3. MYSLEE [Concomitant]
     Active Substance: ZOLPIDEM TARTRATE
     Indication: INSOMNIA
     Dosage: 2.5 MG, AS NEEDED AT THE TIME OF SLEEP LOSS
     Route: 048
     Dates: start: 20131022
  4. BAYASPIRIN [Concomitant]
     Active Substance: ASPIRIN
     Indication: CEREBRAL THROMBOSIS
     Dosage: 100 MG, QD
     Route: 048
     Dates: start: 20100325

REACTIONS (1)
  - Chondrocalcinosis pyrophosphate [Recovering/Resolving]

NARRATIVE: CASE EVENT DATE: 20141013
